FAERS Safety Report 21754443 (Version 1)
Quarter: 2022Q4

REPORT INFORMATION
  Report Type: Spontaneous
  Country: FI (occurrence: FI)
  Receive Date: 20221220
  Receipt Date: 20221220
  Transmission Date: 20230113
  Serious: Yes (Other)
  Sender: FDA-Public Use
  Company Number: FI-PFIZER INC-PV202200125084

PATIENT
  Age: 81 Year

DRUGS (1)
  1. VYNDAQEL [Suspect]
     Active Substance: TAFAMIDIS MEGLUMINE

REACTIONS (2)
  - Atrial flutter [Recovering/Resolving]
  - Electrocardiogram QT prolonged [Recovering/Resolving]
